FAERS Safety Report 7290109-X (Version None)
Quarter: 2011Q1

REPORT INFORMATION
  Report Type: 
  Country: None (occurrence: None)
  Receive Date: 20110214
  Receipt Date: 20110208
  Transmission Date: 20110831
  Serious: Yes (Congenital Anomaly, Other)
  Sender: FDA-Public Use
  Company Number: US-BRISTOL-MYERS SQUIBB COMPANY-14767123

PATIENT
  Sex: Female
  Weight: 3 kg

DRUGS (9)
  1. SUSTIVA [Suspect]
     Dosage: INTERRUPTED ON 16NOV2008,PO
     Route: 064
     Dates: end: 20081116
  2. PROPYLTHIOURACIL [Concomitant]
     Route: 064
  3. REYATAZ [Suspect]
     Route: 064
     Dates: start: 20081117, end: 20090711
  4. TRUVADA [Suspect]
     Dosage: UNK TO 17NOV2008;INTERRUPTED ON 16NOV2008M, INTERRUPTED:11JUL09
     Route: 064
  5. ABILIFY [Concomitant]
     Route: 064
  6. CANNABIS [Concomitant]
  7. EMTRIVA [Suspect]
     Route: 064
  8. NORVIR [Suspect]
     Route: 064
     Dates: start: 20081117, end: 20090711
  9. ALBUTEROL INHALER [Concomitant]
     Route: 064

REACTIONS (1)
  - VENTRICULAR SEPTAL DEFECT [None]
